FAERS Safety Report 8903821 (Version 2)
Quarter: 2013Q2

REPORT INFORMATION
  Report Type: Report from Study
  Country: JP (occurrence: JP)
  Receive Date: 20121113
  Receipt Date: 20130606
  Transmission Date: 20140414
  Serious: Yes (Hospitalization)
  Sender: FDA-Public Use
  Company Number: JP-VERTEX PHARMACEUTICAL INC.-AE-2012-003955

PATIENT
  Age: 69 Year
  Sex: Female

DRUGS (13)
  1. VX-950 (TELAPREVIR) [Suspect]
     Indication: CHRONIC HEPATITIS C
     Dosage: 1500 MG, QD
     Route: 048
     Dates: start: 20120124, end: 20120319
  2. PEGINTRON [Suspect]
     Indication: CHRONIC HEPATITIS C
     Dosage: 1.5 ?G/KG, QW
     Route: 058
     Dates: start: 20120124, end: 20120313
  3. REBETOL [Suspect]
     Indication: CHRONIC HEPATITIS C
     Dosage: 600 MG, QD
     Route: 048
     Dates: start: 20120124, end: 20120202
  4. REBETOL [Suspect]
     Dosage: 400 MG, QD
     Route: 048
     Dates: start: 20120203, end: 20120214
  5. REBETOL [Suspect]
     Dosage: 200 MG, QD
     Route: 048
     Dates: start: 20120215, end: 20120319
  6. VASOLAN [Concomitant]
     Dosage: 120 MG, QD
     Route: 048
     Dates: end: 20120319
  7. VASOLAN [Concomitant]
     Dosage: 60 MG, QD
     Route: 048
     Dates: start: 20120320, end: 20120321
  8. MYSLEE [Concomitant]
     Dosage: 2.5 MG, QD
     Route: 048
  9. MERCAZOLE [Concomitant]
     Dosage: 1.25 MG, QD
     Route: 048
  10. LANIRAPID [Concomitant]
     Dosage: 0.1 MG, QD
     Route: 048
     Dates: end: 20120131
  11. WARFARIN K [Concomitant]
     Dosage: 2.5 MG, QD
     Route: 048
     Dates: end: 20120206
  12. LOXOPROFEN [Concomitant]
     Dosage: 60 MG, PRN
     Route: 048
     Dates: start: 20120123, end: 20120220
  13. MUCOSTA [Concomitant]
     Dosage: 100 MG, QD/PRN
     Route: 048
     Dates: start: 20120123, end: 20120220

REACTIONS (1)
  - Cardiac failure [Recovered/Resolved]
